FAERS Safety Report 14635984 (Version 5)
Quarter: 2022Q4

REPORT INFORMATION
  Report Type: Spontaneous
  Country: GB (occurrence: GB)
  Receive Date: 20180314
  Receipt Date: 20221228
  Transmission Date: 20230113
  Serious: Yes (Hospitalization, Other)
  Sender: FDA-Public Use
  Company Number: PHHY2016GB186243

PATIENT
  Sex: Male

DRUGS (20)
  1. METRONIDAZOLE [Suspect]
     Active Substance: METRONIDAZOLE
     Indication: Product used for unknown indication
     Dosage: 1 DOSAGE FORM
     Route: 065
  2. METRONIDAZOLE [Suspect]
     Active Substance: METRONIDAZOLE
     Dosage: 400 MG, Q8H (TDS FOR 2 WEEKS)
     Route: 065
     Dates: start: 20161013
  3. VEDOLIZUMAB [Concomitant]
     Active Substance: VEDOLIZUMAB
     Indication: Crohn^s disease
     Dosage: UNK (120 UNK THIRD DOSE, MLN0002)
     Route: 042
     Dates: start: 20160505
  4. VEDOLIZUMAB [Concomitant]
     Active Substance: VEDOLIZUMAB
     Dosage: UNK (FOURTH DOSE, MLN0002)
     Route: 042
     Dates: start: 20160614
  5. VEDOLIZUMAB [Concomitant]
     Active Substance: VEDOLIZUMAB
     Dosage: UNK (SECOND DOSE, MLN0002)
     Route: 042
     Dates: start: 20160809
  6. VEDOLIZUMAB [Concomitant]
     Active Substance: VEDOLIZUMAB
     Dosage: UNK (FIRST DOSE, MLN0002)
     Route: 042
     Dates: start: 20161013
  7. PREDNISOLONE [Concomitant]
     Active Substance: PREDNISOLONE
     Indication: Product used for unknown indication
     Dosage: 5 MG, QD
     Route: 065
  8. PREDNISOLONE [Concomitant]
     Active Substance: PREDNISOLONE
     Dosage: 40 MG, QD
     Route: 065
     Dates: start: 20161014
  9. PREDNISOLONE [Concomitant]
     Active Substance: PREDNISOLONE
     Dosage: 50 MG, QD
     Route: 065
  10. PREDNISOLONE [Concomitant]
     Active Substance: PREDNISOLONE
     Dosage: 5 MG, QW
     Route: 065
  11. AZATHIOPRINE [Concomitant]
     Active Substance: AZATHIOPRINE
     Indication: Product used for unknown indication
     Dosage: 50 MG, QD
     Route: 065
  12. AZATHIOPRINE [Concomitant]
     Active Substance: AZATHIOPRINE
     Dosage: 50 MG, QD
     Route: 065
  13. ADCAL [Concomitant]
     Indication: Product used for unknown indication
     Dosage: 50 MG, QD
     Route: 065
     Dates: start: 20161014
  14. SULFASALAZINE [Concomitant]
     Active Substance: SULFASALAZINE
     Indication: Product used for unknown indication
     Dosage: 50 MG, QD
     Route: 065
     Dates: start: 20161014
  15. FOLIC ACID [Concomitant]
     Active Substance: FOLIC ACID
     Indication: Product used for unknown indication
     Dosage: 5 MG, QD
     Route: 065
     Dates: start: 20161014
  16. INFLIXIMAB [Concomitant]
     Active Substance: INFLIXIMAB
     Indication: Product used for unknown indication
     Dosage: 5 MG, QD
     Route: 065
     Dates: start: 20161014
  17. CALCIUM CARBONATE [Concomitant]
     Active Substance: CALCIUM CARBONATE
     Indication: Product used for unknown indication
     Dosage: 50 MG, QD
     Route: 065
  18. FERROUS SULFATE [Concomitant]
     Active Substance: FERROUS SULFATE
     Indication: Product used for unknown indication
     Dosage: 5 MG, QD
     Route: 065
     Dates: start: 20161014
  19. USTEKINUMAB [Concomitant]
     Active Substance: USTEKINUMAB
     Indication: Product used for unknown indication
     Dosage: UNK
     Route: 065
     Dates: start: 20170720
  20. CARBAZOCHROME [Concomitant]
     Active Substance: CARBAZOCHROME
     Indication: Product used for unknown indication
     Dosage: UNK
     Route: 065

REACTIONS (9)
  - Sepsis [Recovered/Resolved with Sequelae]
  - Fistula [Recovered/Resolved]
  - Infusion related reaction [Recovered/Resolved]
  - Abscess [Recovered/Resolved]
  - Fistula discharge [Recovered/Resolved]
  - Anal fistula [Recovered/Resolved]
  - Tenderness [Recovered/Resolved]
  - Arthralgia [Not Recovered/Not Resolved]
  - Myalgia [Not Recovered/Not Resolved]

NARRATIVE: CASE EVENT DATE: 20160614
